FAERS Safety Report 9228527 (Version 1)
Quarter: 2013Q2

REPORT INFORMATION
  Report Type: Report from Study
  Country: ES (occurrence: ES)
  Receive Date: 20130412
  Receipt Date: 20130412
  Transmission Date: 20140414
  Serious: Yes (Hospitalization)
  Sender: FDA-Public Use
  Company Number: ES-GLAXOSMITHKLINE-B0883202A

PATIENT
  Age: 81 Year
  Sex: Male

DRUGS (6)
  1. OMACOR [Suspect]
     Indication: HYPERTRIGLYCERIDAEMIA
     Dosage: 2000MG PER DAY
     Route: 048
     Dates: start: 2011, end: 20130117
  2. SEGURIL [Suspect]
     Indication: HYPERTENSION
     Dosage: 40MG PER DAY
     Route: 048
     Dates: start: 2011, end: 20130117
  3. MANIDIPINE HYDROCHLORIDE [Suspect]
     Indication: PRODUCT USED FOR UNKNOWN INDICATION
     Dosage: 10MG PER DAY
     Route: 048
     Dates: start: 2011, end: 20130117
  4. HIDROFEROL [Suspect]
     Indication: PRODUCT USED FOR UNKNOWN INDICATION
     Dosage: 1AMP EVERY TWO WEEKS
     Route: 048
     Dates: start: 2012, end: 20130115
  5. CARVEDILOL [Concomitant]
     Dosage: 6.25MG PER DAY
  6. VENOFER [Concomitant]
     Dates: start: 2012, end: 201207

REACTIONS (1)
  - Stevens-Johnson syndrome [Recovered/Resolved]
